FAERS Safety Report 10223162 (Version 4)
Quarter: 2014Q4

REPORT INFORMATION
  Report Type: Spontaneous
  Country: JP (occurrence: JP)
  Receive Date: 20140608
  Receipt Date: 20141219
  Transmission Date: 20150528
  Serious: Yes (Other)
  Sender: FDA-Public Use
  Company Number: JP-009507513-1406JPN000870

PATIENT
  Age: 73 Year
  Sex: Female
  Weight: 70 kg

DRUGS (13)
  1. ESLAX [Suspect]
     Active Substance: ROCURONIUM BROMIDE
     Indication: NEUROMUSCULAR BLOCKING THERAPY
     Dosage: 10 MG, AT 0 MIN
     Route: 042
     Dates: start: 20140403, end: 20140403
  2. ESLAX [Suspect]
     Active Substance: ROCURONIUM BROMIDE
     Dosage: 10 MG, AT 100 MIN
     Route: 042
     Dates: start: 20140403, end: 20140403
  3. ULTIVA [Concomitant]
     Active Substance: REMIFENTANIL HYDROCHLORIDE
     Indication: ANALGESIC THERAPY
     Dosage: DAILY DOSAGE UNKNOWN, ABOUT 1.2 MG
     Route: 042
     Dates: start: 20140403, end: 20140403
  4. ESLAX [Suspect]
     Active Substance: ROCURONIUM BROMIDE
     Dosage: 10 MG, AT 50 MIN
     Route: 042
     Dates: start: 20140403, end: 20140403
  5. ATROPINE SULFATE. [Concomitant]
     Active Substance: ATROPINE SULFATE
     Indication: HEART RATE DECREASED
     Dosage: DIVIDED DOSE, FREQUENCY UNKNOWN, 0.5 MG, UNK
     Route: 042
     Dates: start: 20140403, end: 20140403
  6. EPHEDRINE HYDROCHLORIDE [Concomitant]
     Active Substance: EPHEDRINE HYDROCHLORIDE
     Indication: BLOOD PRESSURE INCREASED
     Dosage: DIVIDED DOSE, FREQUENCY UNKNOWN, 4 MG, UNK
     Route: 042
     Dates: start: 20140403, end: 20140403
  7. DESFLURANE. [Concomitant]
     Active Substance: DESFLURANE
     Dosage: DAILY DOSAGE UNKNOWN
     Route: 065
     Dates: start: 20140403, end: 20140403
  8. NORVASC [Concomitant]
     Active Substance: AMLODIPINE BESYLATE
     Indication: BLOOD PRESSURE MANAGEMENT
     Dosage: 5 MG, QD
     Route: 048
     Dates: start: 2011
  9. ESLAX [Suspect]
     Active Substance: ROCURONIUM BROMIDE
     Dosage: 20 MG, AT 55 MIN
     Route: 042
     Dates: start: 20140403, end: 20140403
  10. REMIFENTANIL HYDROCHLORIDE [Concomitant]
     Active Substance: REMIFENTANIL HYDROCHLORIDE
     Dosage: DAILY DOSE UNKNOWN
     Route: 042
     Dates: start: 20140403, end: 20140403
  11. PROPOFOL. [Concomitant]
     Active Substance: PROPOFOL
     Indication: INDUCTION OF ANAESTHESIA
     Dosage: DIVIDED SOE, FREQUENCY UNKNOWN, 130 MG, UNK
     Route: 042
     Dates: start: 20140403, end: 20140403
  12. BRIDION INTRAVENOUS 200MG [Concomitant]
     Active Substance: SUGAMMADEX
     Indication: NEUROMUSCULAR BLOCKADE REVERSAL
     Dosage: 200 MG, QD
     Route: 042
     Dates: start: 20140403, end: 20140403
  13. FENTANYL CITRATE. [Concomitant]
     Active Substance: FENTANYL CITRATE
     Indication: ANALGESIC THERAPY
     Dosage: DIVIDED DOSE, FREQUENCY UNKNOWN, 200 MG, UNK
     Route: 042
     Dates: start: 20140403, end: 20140403

REACTIONS (3)
  - Eyelid oedema [Recovering/Resolving]
  - Urticaria [Recovered/Resolved]
  - Anaphylactic reaction [Recovered/Resolved]

NARRATIVE: CASE EVENT DATE: 20140403
